FAERS Safety Report 6182971-9 (Version None)
Quarter: 2009Q2

REPORT INFORMATION
  Report Type: 
  Country: None (occurrence: None)
  Receive Date: 20090507
  Receipt Date: 20090429
  Transmission Date: 20091009
  Serious: Yes (Hospitalization, Other)
  Sender: FDA-Public Use
  Company Number: CH-ELI_LILLY_AND_COMPANY-CH200904007156

PATIENT
  Sex: Male

DRUGS (10)
  1. GEMZAR [Suspect]
     Indication: PANCREATIC CARCINOMA METASTATIC
     Dosage: UNK UNK, OTHER
     Route: 042
     Dates: start: 20080402, end: 20090130
  2. OXALIPLATIN [Concomitant]
     Indication: PANCREATIC CARCINOMA
     Dosage: UNK UNK, OTHER
     Route: 042
     Dates: start: 20080402, end: 20090513
  3. INSULIN [Concomitant]
  4. AMLODIPINE [Concomitant]
  5. IRBESARTAN [Concomitant]
     Dosage: 150 MG, UNK
  6. CARVEDILOL [Concomitant]
  7. LISINOPRIL [Concomitant]
  8. NEXIUM [Concomitant]
  9. MIRTAZAPINE [Concomitant]
  10. FUROSEMIDE [Concomitant]

REACTIONS (3)
  - MALIGNANT NEOPLASM PROGRESSION [None]
  - RENAL FAILURE CHRONIC [None]
  - THROMBOTIC MICROANGIOPATHY [None]
